FAERS Safety Report 8539828-5 (Version None)
Quarter: 2012Q3

REPORT INFORMATION
  Report Type: 
  Country: None (occurrence: None)
  Receive Date: 20120726
  Receipt Date: 20120723
  Transmission Date: 20120928
  Serious: Yes (Death)
  Sender: FDA-Public Use
  Company Number: FR-PFIZER INC-2012176949

PATIENT
  Age: 88 Year
  Sex: Female

DRUGS (6)
  1. ATORVASTATIN [Suspect]
     Indication: THROMBOSIS PROPHYLAXIS
     Dosage: 1 DF, 1X/DAY
     Route: 048
     Dates: end: 20120205
  2. SINGULAIR [Suspect]
     Indication: CHRONIC OBSTRUCTIVE PULMONARY DISEASE
     Dosage: 1 DF, 1X/DAY
     Route: 048
     Dates: end: 20120205
  3. ASPIRIN [Suspect]
     Indication: ATRIAL FIBRILLATION
     Dosage: 75 MG, 1X/DAY
     Route: 048
     Dates: end: 20120205
  4. AMIODARONE HCL [Suspect]
     Indication: ATRIAL FIBRILLATION
     Dosage: 1 DF, 1X/DAY
     Route: 048
     Dates: end: 20120205
  5. BUDESONIDE [Suspect]
     Indication: CHRONIC OBSTRUCTIVE PULMONARY DISEASE
     Dosage: 1 DF, 2X/DAY
     Route: 055
     Dates: end: 20120205
  6. NITROGLYCERIN [Suspect]
     Indication: ANGINA PECTORIS
     Dosage: UNK
     Route: 062
     Dates: end: 20120205

REACTIONS (3)
  - CEREBRAL HAEMORRHAGE [None]
  - CEREBELLAR HAEMORRHAGE [None]
  - SUBARACHNOID HAEMORRHAGE [None]
